FAERS Safety Report 5159055-1 (Version None)
Quarter: 2006Q4

REPORT INFORMATION
  Report Type: 
  Country: None (occurrence: None)
  Receive Date: 20061128
  Receipt Date: 20061120
  Transmission Date: 20070319
  Serious: Yes (Death)
  Sender: FDA-Public Use
  Company Number: US-ROXANE LABORATORIES, INC-2006-DE-06145GD

PATIENT

DRUGS (3)
  1. MORPHINE [Suspect]
  2. ZOLPIDEM TARTRATE [Suspect]
  3. HYDROCODONE [Suspect]

REACTIONS (3)
  - CARBON MONOXIDE POISONING [None]
  - COMPLETED SUICIDE [None]
  - SUICIDE ATTEMPT [None]
